FAERS Safety Report 8105269-8 (Version None)
Quarter: 2012Q1

REPORT INFORMATION
  Report Type: 
  Country: None (occurrence: None)
  Receive Date: 20120201
  Receipt Date: 20120124
  Transmission Date: 20120608
  Serious: Yes (Hospitalization)
  Sender: FDA-Public Use
  Company Number: FR-SANOFI-AVENTIS-2012SA004934

PATIENT
  Age: 58 Year
  Sex: Male

DRUGS (4)
  1. PRAVASTATIN [Concomitant]
     Dosage: FOR AT LEAST 5 YEARS.
     Route: 048
  2. NEULASTA [Concomitant]
     Route: 058
     Dates: start: 20110602
  3. PREDNISOLONE [Concomitant]
     Dosage: 100 MG/DAY FOR 5 DAYS AFTER EACH CYCLE.
     Route: 048
     Dates: start: 20110602
  4. TAXOTERE [Suspect]
     Indication: METASTATIC BRONCHIAL CARCINOMA
     Route: 042
     Dates: start: 20110509, end: 20110601

REACTIONS (2)
  - HAEMOPTYSIS [None]
  - NEUTROPENIA [None]
